FAERS Safety Report 7755663-X (Version None)
Quarter: 2011Q3

REPORT INFORMATION
  Report Type: 
  Country: None (occurrence: None)
  Receive Date: 20110916
  Receipt Date: 20110907
  Transmission Date: 20111222
  Serious: Yes (Hospitalization)
  Sender: FDA-Public Use
  Company Number: IT-B.I. PHARMACEUTICALS,INC./RIDGEFIELD-2011-IT-00226IT

PATIENT
  Sex: Female

DRUGS (4)
  1. RISPERDAL [Suspect]
     Dosage: 20 MG
     Route: 048
     Dates: start: 20110730
  2. ACTOS [Suspect]
     Dosage: 420 MG
     Route: 048
     Dates: start: 20110730
  3. MICARDIS [Suspect]
     Dosage: 1120 MG
     Route: 048
     Dates: start: 20110730
  4. ANAFRANIL [Suspect]
     Dosage: 750 MG
     Route: 048
     Dates: start: 20110730

REACTIONS (1)
  - SELF INJURIOUS BEHAVIOUR [None]
